FAERS Safety Report 20623628 (Version 1)
Quarter: 2022Q1

REPORT INFORMATION
  Report Type: Spontaneous
  Country: US (occurrence: None)
  Receive Date: 20220322
  Receipt Date: 20220322
  Transmission Date: 20220423
  Serious: No
  Sender: FDA-Public Use
  Company Number: None

PATIENT

DRUGS (1)
  1. FLUOROURACIL [Suspect]
     Active Substance: FLUOROURACIL
     Route: 061

REACTIONS (8)
  - Product communication issue [None]
  - Product label issue [None]
  - Application site erythema [None]
  - Application site pain [None]
  - Skin lesion [None]
  - Product selection error [None]
  - Wrong product administered [None]
  - Drug ineffective [None]
